FAERS Safety Report 7782535-7 (Version None)
Quarter: 2011Q3

REPORT INFORMATION
  Report Type: 
  Country: None (occurrence: None)
  Receive Date: 20110923
  Receipt Date: 20110913
  Transmission Date: 20111222
  Serious: Yes (Other)
  Sender: FDA-Public Use
  Company Number: 2011SP042940

PATIENT
  Age: 26 Year
  Sex: Female

DRUGS (4)
  1. REBETOL [Suspect]
     Dosage: 800 MG; QD ; PO
     Route: 048
     Dates: start: 20110401, end: 20110619
  2. VIRAFERONPEG [Suspect]
     Dosage: 80 MCG; QW; SC
     Route: 058
     Dates: start: 20110401, end: 20110619
  3. ACETAMINOPHEN [Concomitant]
  4. LEVOCARNIL [Concomitant]

REACTIONS (6)
  - DERMATITIS BULLOUS [None]
  - DERMATITIS ALLERGIC [None]
  - RASH VESICULAR [None]
  - APHTHOUS STOMATITIS [None]
  - DERMATOSIS [None]
  - PHOTOSENSITIVITY REACTION [None]
